FAERS Safety Report 13470853 (Version 1)
Quarter: 2017Q2

REPORT INFORMATION
  Report Type: Spontaneous
  Country: US (occurrence: US)
  Receive Date: 20170424
  Receipt Date: 20170424
  Transmission Date: 20170830
  Serious: Yes (Hospitalization, Other)
  Sender: FDA-Public Use
  Company Number: US-TORRENT-00002677

PATIENT
  Age: 66 Year
  Sex: Female

DRUGS (8)
  1. LEVETIRACETAM. [Suspect]
     Active Substance: LEVETIRACETAM
  2. TOPIRAMATE. [Suspect]
     Active Substance: TOPIRAMATE
  3. PROPOFOL. [Suspect]
     Active Substance: PROPOFOL
  4. LORAZEPAM. [Suspect]
     Active Substance: LORAZEPAM
  5. KETAMINE [Suspect]
     Active Substance: KETAMINE
  6. PHENYTOIN. [Suspect]
     Active Substance: PHENYTOIN
  7. MIDAZOLAM [Suspect]
     Active Substance: MIDAZOLAM HYDROCHLORIDE
  8. LACOSAMIDE. [Suspect]
     Active Substance: LACOSAMIDE

REACTIONS (1)
  - Drug ineffective [Unknown]
